FAERS Safety Report 8954918 (Version 1)
Quarter: 2012Q4

REPORT INFORMATION
  Report Type: 
  Country: US (occurrence: US)
  Receive Date: 20121207
  Receipt Date: 20121207
  Transmission Date: 20130627
  Serious: Yes (Death)
  Sender: FDA-Public Use
  Company Number: CHPA2012US024826

PATIENT
  Age: 41 Year
  Sex: Male

DRUGS (1)
  1. 4 WAY SALINE MOISTURIZING MIST [Suspect]
     Indication: SINUS DISORDER
     Dosage: Unk, once per day

REACTIONS (4)
  - Myocardial infarction [Fatal]
  - Arterial occlusive disease [Fatal]
  - Blood cholesterol increased [Fatal]
  - Therapeutic response unexpected [Unknown]
